FAERS Safety Report 6299100-3 (Version None)
Quarter: 2009Q3

REPORT INFORMATION
  Report Type: 
  Country: None (occurrence: None)
  Receive Date: 20090806
  Receipt Date: 20090728
  Transmission Date: 20100115
  Serious: Yes (Hospitalization, Other)
  Sender: FDA-Public Use
  Company Number: US-ABBOTT-09P-163-0585040-00

PATIENT
  Sex: Male
  Weight: 88.076 kg

DRUGS (19)
  1. RITONAVIR [Suspect]
     Indication: HIV INFECTION
     Route: 048
     Dates: start: 20090615, end: 20090709
  2. ATAZANAVIR [Concomitant]
     Indication: HIV INFECTION
     Route: 048
     Dates: start: 20090615, end: 20090709
  3. FTC/TDF [Concomitant]
     Indication: HIV INFECTION
     Dosage: 200/300MG DAILY
     Route: 048
     Dates: start: 20090615, end: 20090709
  4. ASPIRIN [Concomitant]
     Indication: CARDIOVASCULAR EVENT PROPHYLAXIS
     Route: 048
     Dates: start: 20050101
  5. DOXAZOSIN MESYLATE [Concomitant]
     Indication: BENIGN PROSTATIC HYPERPLASIA
     Route: 048
     Dates: start: 20090106
  6. AVODART [Concomitant]
     Indication: BENIGN PROSTATIC HYPERPLASIA
     Dates: start: 20090106, end: 20090401
  7. HYDROCORTISONE [Concomitant]
     Indication: RASH
     Route: 061
     Dates: start: 20090301
  8. HYDROCORTISONE [Concomitant]
     Indication: PRURITUS
  9. ACCOLATE [Concomitant]
     Indication: RASH
     Route: 048
     Dates: start: 20090301
  10. ACCOLATE [Concomitant]
     Indication: HYPERSENSITIVITY
  11. CENTRUM [Concomitant]
     Indication: VITAMIN SUPPLEMENTATION
     Route: 048
     Dates: start: 20090101
  12. EMLA [Concomitant]
     Indication: RASH
     Route: 061
     Dates: start: 20090301
  13. EMLA [Concomitant]
     Indication: PRURITUS
  14. EMLA [Concomitant]
     Indication: PAIN
  15. PROVENTIL-HFA [Concomitant]
     Indication: ASTHMA
     Route: 055
     Dates: start: 19790101
  16. ARTIFICIAL TEARS [Concomitant]
     Indication: DRY EYE
     Dosage: 2 DROPS IN LEFT EYE 3 TIMES A DAY
     Dates: start: 20051101
  17. LUBRICATING EYE OINTMENT [Concomitant]
     Indication: DRY EYE
     Dosage: LEFT EYE 2 TIMES A DAY
     Dates: start: 20051101
  18. RESTASIS [Concomitant]
     Indication: DRY EYE
     Dosage: 1 DROP IN LEFT EYE 2 TIMES A DAY
     Dates: start: 20051101
  19. NEXIUM [Concomitant]
     Indication: GASTROOESOPHAGEAL REFLUX DISEASE
     Dates: start: 20081001

REACTIONS (3)
  - COUGH [None]
  - HAEMATURIA [None]
  - RASH [None]
